FAERS Safety Report 8299360-3 (Version None)
Quarter: 2012Q2

REPORT INFORMATION
  Report Type: 
  Country: None (occurrence: None)
  Receive Date: 20120419
  Receipt Date: 20120412
  Transmission Date: 20120825
  Serious: Yes (Hospitalization)
  Sender: FDA-Public Use
  Company Number: US-INCYTE CORPORATION-2012IN000579

PATIENT
  Sex: Female

DRUGS (9)
  1. JAKAFI [Suspect]
     Indication: MYELOFIBROSIS
     Dosage: 20 MG, BID
     Route: 048
  2. METFORMIN HCL [Concomitant]
     Dosage: 1000 MG, QD (2 IN AM)
  3. METFORMIN HCL [Concomitant]
     Dosage: 1500 MG, QD (3 IN PM)
  4. LISINOPRIL [Concomitant]
     Dosage: 5 MG, QD
  5. JAKAFI [Suspect]
     Dosage: 5 MG, BID
  6. PREDNISONE TAB [Concomitant]
     Dosage: 10 MG, QD
  7. ALLOPURINOL [Concomitant]
     Dosage: 300 MG, QD
  8. JAKAFI [Suspect]
     Dosage: 10 MG, QD
  9. ASPIRIN [Concomitant]
     Dosage: 81 MG, QD

REACTIONS (1)
  - HOSPITALISATION [None]
